FAERS Safety Report 6230726-9 (Version None)
Quarter: 2009Q2

REPORT INFORMATION
  Report Type: 
  Country: None (occurrence: None)
  Receive Date: 20090616
  Receipt Date: 20090602
  Transmission Date: 20091009
  Serious: Yes (Other)
  Sender: FDA-Public Use
  Company Number: US-RB-016882-09

PATIENT
  Age: 13 Year
  Sex: Female

DRUGS (1)
  1. CLEARASIL ULTRA DEEP PORE CLEANSING PADS [Suspect]

REACTIONS (3)
  - HYPERSENSITIVITY [None]
  - RESPIRATORY TRACT CONGESTION [None]
  - URTICARIA [None]
